FAERS Safety Report 4281430-8 (Version None)
Quarter: 2004Q1

REPORT INFORMATION
  Report Type: 
  Country: None (occurrence: None)
  Receive Date: 20040112
  Receipt Date: 20030827
  Transmission Date: 20041129
  Serious: Yes (Other)
  Sender: FDA-Public Use
  Company Number: US-JNJFOC-20030805627

PATIENT
  Age: 50 Year
  Sex: Male

DRUGS (3)
  1. REOPRO [Suspect]
     Indication: MYOCARDIAL INFARCTION
     Dosage: INTRAVENOUS
     Route: 042
  2. HEPARIN [Concomitant]
  3. THROMBOLYTICS (ANTITHROMBOTIC AGENTS) [Concomitant]

REACTIONS (2)
  - CHEST PAIN [None]
  - DRUG INEFFECTIVE [None]
